FAERS Safety Report 21269173 (Version 2)
Quarter: 2025Q4

REPORT INFORMATION
  Report Type: Spontaneous
  Country: EU (occurrence: EU)
  Receive Date: 20220830
  Receipt Date: 20251015
  Transmission Date: 20260118
  Serious: Yes (Hospitalization)
  Sender: AUROBINDO
  Company Number: EU-TEVA-2022-PL-2064909

PATIENT
  Age: 51 Year
  Sex: Male

DRUGS (7)
  1. SILDENAFIL [Suspect]
     Active Substance: SILDENAFIL
     Indication: Pulmonary arterial hypertension
     Dosage: 20 MILLIGRAM, 3 TIMES A DAY
     Route: 065
  2. MACITENTAN [Concomitant]
     Active Substance: MACITENTAN
     Indication: Pulmonary arterial hypertension
     Dosage: 10 MILLIGRAM, ONCE A DAY
     Route: 065
  3. TREPROSTINIL [Concomitant]
     Active Substance: TREPROSTINIL
     Indication: Pulmonary arterial hypertension
     Route: 058
  4. TORSEMIDE [Concomitant]
     Active Substance: TORSEMIDE
     Indication: Pulmonary arterial hypertension
     Dosage: 5 MILLIGRAM, ONCE A DAY
     Route: 065
  5. NEBIVOLOL [Concomitant]
     Active Substance: NEBIVOLOL
     Indication: Pulmonary arterial hypertension
     Dosage: 5 MILLIGRAM, ONCE A DAY
     Route: 065
  6. ATORVASTATIN [Concomitant]
     Active Substance: ATORVASTATIN
     Indication: Pulmonary arterial hypertension
     Dosage: 10 MILLIGRAM, ONCE A DAY
     Route: 065
  7. ASPIRIN [Concomitant]
     Active Substance: ASPIRIN
     Indication: Pulmonary arterial hypertension
     Dosage: 75 MILLIGRAM, ONCE A DAY
     Route: 065

REACTIONS (1)
  - General physical health deterioration [Recovering/Resolving]
